FAERS Safety Report 5432072-X (Version None)
Quarter: 2007Q3

REPORT INFORMATION
  Report Type: 
  Country: None (occurrence: None)
  Receive Date: 20070830
  Receipt Date: 20070827
  Transmission Date: 20080115
  Serious: Yes (Hospitalization)
  Sender: FDA-Public Use
  Company Number: US-BOEHRINGER INGELHEIM PHARMACEUTICALS, INC.-2007-BP-03291BP

PATIENT
  Sex: Male

DRUGS (3)
  1. FLOMAX [Suspect]
     Route: 048
     Dates: start: 19980101
  2. PROSCAR [Concomitant]
  3. FLONASE [Concomitant]

REACTIONS (2)
  - CHONDROPATHY [None]
  - INSOMNIA [None]
